FAERS Safety Report 4679988-X (Version None)
Quarter: 2005Q2

REPORT INFORMATION
  Report Type: 
  Country: None (occurrence: None)
  Receive Date: 20050531
  Receipt Date: 20050519
  Transmission Date: 20051028
  Serious: Yes (Life-Threatening)
  Sender: FDA-Public Use
  Company Number: B0381591A

PATIENT
  Age: 47 Year
  Sex: Female
  Weight: 60.8727 kg

DRUGS (2)
  1. GW679769 (GW679769) [Suspect]
     Indication: PROPHYLAXIS OF NAUSEA AND VOMITING
     Dosage: 150 MG / SINGLE DOSE / ORAL
     Route: 048
     Dates: start: 20050425
  2. ZOFRAN [Suspect]
     Indication: PROPHYLAXIS OF NAUSEA AND VOMITING
     Dosage: 4 MG / SINGLE DOSE / INTRAVENOUS
     Route: 042
     Dates: start: 20050425

REACTIONS (1)
  - HYPERGLYCAEMIA [None]
